FAERS Safety Report 6984862 (Version 2)
Quarter: 2014Q2

REPORT INFORMATION
  Report Type: Spontaneous
  Country: US (occurrence: US)
  Receive Date: 20090501
  Receipt Date: 20140410
  Transmission Date: 20141212
  Serious: Yes (Hospitalization, Other)
  Sender: FDA-Public Use
  Company Number: US-ALEXION-A200900004

PATIENT
  Sex: Male

DRUGS (3)
  1. SOLIRIS [Suspect]
     Indication: PAROXYSMAL NOCTURNAL HAEMOGLOBINURIA
     Dosage: 600 MG, SINGLE
     Route: 042
     Dates: start: 20081211, end: 20081211
  2. SOLIRIS [Suspect]
     Dosage: UNK
     Route: 042
     Dates: start: 20081231, end: 20081231
  3. SOLIRIS [Suspect]
     Dosage: UNK

REACTIONS (2)
  - Prophylaxis [Unknown]
  - Haemolysis [Unknown]
